FAERS Safety Report 7187245-5 (Version None)
Quarter: 2010Q4

REPORT INFORMATION
  Report Type: 
  Country: None (occurrence: None)
  Receive Date: 20101222
  Receipt Date: 20101213
  Transmission Date: 20110411
  Serious: Yes (Hospitalization, Other)
  Sender: FDA-Public Use
  Company Number: US-ELI_LILLY_AND_COMPANY-US201001002193

PATIENT
  Sex: Female

DRUGS (22)
  1. FORTEO [Suspect]
     Indication: OSTEOPOROSIS
     Dosage: 20 UG, DAILY (1/D)
     Route: 058
     Dates: start: 20091111
  2. FORTEO [Suspect]
     Dosage: 20 UG, DAILY (1/D)
     Dates: start: 20091111
  3. ADVAIR [Concomitant]
     Dosage: 500-50 D/F, 2/D
     Route: 065
  4. ALBUTEROL SULFATE [Concomitant]
     Dosage: UNK, AS NEEDED
     Route: 065
  5. SPIRIVA [Concomitant]
     Dosage: 18 MG, DAILY (1/D)
     Route: 065
  6. RAMIPRIL [Concomitant]
     Dosage: 5 MG, 2/D
     Route: 065
  7. CARVEDILOL [Concomitant]
     Dosage: 3.125 MG, 2/D
     Route: 065
  8. SIMVASTATIN [Concomitant]
     Dosage: 40 MG, DAILY (1/D)
     Route: 065
  9. OMEPRAZOLE [Concomitant]
     Dosage: 20 MG, DAILY (1/D)
     Route: 065
  10. STOOL SOFTENER [Concomitant]
     Dosage: 100 MG, 2/D
     Route: 065
  11. MAGNESIUM [Concomitant]
     Dosage: 400 MG, DAILY (1/D)
     Route: 065
  12. FUROSEMIDE [Concomitant]
     Dosage: 40 MG, DAILY (1/D)
     Route: 065
  13. ASPIRIN [Concomitant]
     Dosage: 81 MG, DAILY (1/D)
     Route: 065
  14. POTASSIUM [Concomitant]
     Dosage: UNK, DAILY (1/D)
     Route: 065
  15. DARVOCET [Concomitant]
     Dosage: UNK, AS NEEDED
     Route: 065
  16. OXYCODONE [Concomitant]
     Dosage: 10 MG, AS NEEDED
     Route: 065
  17. OXYCODONE [Concomitant]
     Dosage: 20 MG 12 HOUR TABLET, 2/D
     Route: 065
  18. CARISOPRODOL [Concomitant]
     Dosage: 350 MG THREE TIMES, AS NEEDED
     Route: 065
  19. CLONAZEPAM [Concomitant]
     Dosage: 1 MG, 2/D
     Route: 065
  20. PREDNISONE [Concomitant]
     Dosage: 20 MG, DAILY (1/D)
     Route: 065
  21. SOLU-MEDROL [Concomitant]
     Dosage: UNK, UNKNOWN
     Route: 065
  22. INSULIN [Concomitant]
     Dosage: UNK, UNKNOWN
     Route: 065

REACTIONS (7)
  - CARDIAC FAILURE CONGESTIVE [None]
  - CHRONIC OBSTRUCTIVE PULMONARY DISEASE [None]
  - DYSPNOEA [None]
  - INJECTION SITE HAEMATOMA [None]
  - INJECTION SITE HAEMORRHAGE [None]
  - PNEUMONIA [None]
  - SPINAL FRACTURE [None]
